FAERS Safety Report 9032552 (Version 1)
Quarter: 2013Q1

REPORT INFORMATION
  Report Type: Spontaneous
  Country: US (occurrence: US)
  Receive Date: 20130122
  Receipt Date: 20130122
  Transmission Date: 20140127
  Serious: No
  Sender: FDA-Public Use
  Company Number: US-PFIZER INC-2013022641

PATIENT
  Sex: Male

DRUGS (2)
  1. PROTONIX [Suspect]
     Indication: EOSINOPHILIC OESOPHAGITIS
     Dosage: 20 MG, UNK
  2. PROTONIX [Suspect]
     Indication: GASTROOESOPHAGEAL REFLUX DISEASE

REACTIONS (1)
  - Oesophageal disorder [Unknown]
